FAERS Safety Report 18745052 (Version 1)
Quarter: 2021Q1

REPORT INFORMATION
  Report Type: Spontaneous
  Country: US (occurrence: US)
  Receive Date: 20210115
  Receipt Date: 20210115
  Transmission Date: 20210419
  Serious: Yes (Hospitalization, Other)
  Sender: FDA-Public Use
  Company Number: US-GLAXOSMITHKLINE-US2021GSK001805

PATIENT
  Age: 27 Year
  Sex: Male

DRUGS (1)
  1. ACETAMINOPHEN. [Suspect]
     Active Substance: ACETAMINOPHEN
     Indication: INFLUENZA LIKE ILLNESS
     Dosage: UNK

REACTIONS (19)
  - Alanine aminotransferase increased [Unknown]
  - Oliguria [Recovered/Resolved]
  - Acute hepatic failure [Recovered/Resolved]
  - Ocular icterus [Unknown]
  - Aspartate aminotransferase increased [Unknown]
  - Hyperammonaemia [Unknown]
  - Asterixis [Unknown]
  - Cells in urine [Unknown]
  - Brain oedema [Unknown]
  - Malaise [Unknown]
  - Blood bilirubin increased [Unknown]
  - Acute kidney injury [Recovered/Resolved]
  - Depressed level of consciousness [Unknown]
  - Renal tubular necrosis [Recovered/Resolved]
  - Abdominal pain [Unknown]
  - Confusional state [Unknown]
  - International normalised ratio increased [Unknown]
  - Hepatic encephalopathy [Unknown]
  - Blood creatinine increased [Recovered/Resolved]
